FAERS Safety Report 7125134-2 (Version None)
Quarter: 2010Q4

REPORT INFORMATION
  Report Type: 
  Country: None (occurrence: None)
  Receive Date: 20101129
  Receipt Date: 20101014
  Transmission Date: 20110411
  Serious: Yes (Hospitalization, Other)
  Sender: FDA-Public Use
  Company Number: US-AMGEN-USASP2010000322

PATIENT

DRUGS (2)
  1. ENBREL [Suspect]
     Indication: RHEUMATOID ARTHRITIS
     Dates: start: 20010101
  2. ENBREL [Suspect]
     Indication: PSORIASIS

REACTIONS (5)
  - BACK DISORDER [None]
  - BONE DEVELOPMENT ABNORMAL [None]
  - HERPES ZOSTER [None]
  - INJECTION SITE HAEMATOMA [None]
  - NERVE INJURY [None]
